FAERS Safety Report 25131048 (Version 2)
Quarter: 2025Q2

REPORT INFORMATION
  Report Type: Spontaneous
  Country: SE (occurrence: SE)
  Receive Date: 20250327
  Receipt Date: 20250408
  Transmission Date: 20250717
  Serious: Yes (Other)
  Sender: PFIZER
  Company Number: None

PATIENT
  Age: 70 Year
  Sex: Female

DRUGS (3)
  1. TRASTUZUMAB [Suspect]
     Active Substance: TRASTUZUMAB
  2. DOCETAXEL [Suspect]
     Active Substance: DOCETAXEL
  3. PERTUZUMAB [Suspect]
     Active Substance: PERTUZUMAB

REACTIONS (1)
  - Drug eruption [Unknown]
